FAERS Safety Report 15559458 (Version 1)
Quarter: 2018Q4

REPORT INFORMATION
  Report Type: Spontaneous
  Country: US (occurrence: US)
  Receive Date: 20181029
  Receipt Date: 20181029
  Transmission Date: 20190205
  Serious: Yes (Life-Threatening, Hospitalization, Other)
  Sender: FDA-Public Use
  Company Number: US-CIPLA LTD.-2018US22110

PATIENT

DRUGS (10)
  1. TERBINAFINE. [Suspect]
     Active Substance: TERBINAFINE
     Indication: ENCEPHALITIS
     Dosage: 250 MG, PER DAY
     Route: 048
  2. TERBINAFINE. [Suspect]
     Active Substance: TERBINAFINE
     Indication: ENCEPHALITIS
     Dosage: UNK
     Route: 042
  3. VORICONAZOLE. [Suspect]
     Active Substance: VORICONAZOLE
     Indication: ENCEPHALITIS
     Dosage: UNK
     Route: 042
  4. CASPOFUNGIN ACETATE. [Suspect]
     Active Substance: CASPOFUNGIN ACETATE
     Indication: ENCEPHALITIS
     Dosage: 5 MG, PER DAY, ADMINISTERED INTRAVENTRICULARLY, INJECTION
  5. CASPOFUNGIN ACETATE. [Suspect]
     Active Substance: CASPOFUNGIN ACETATE
     Indication: SCEDOSPORIUM INFECTION
  6. SODIUM CHLORIDE. [Concomitant]
     Active Substance: SODIUM CHLORIDE
     Indication: PRODUCT USED FOR UNKNOWN INDICATION
     Dosage: 10.8 ML, PER DAY, ADMINISTERED INTRAVENTRICULARLY, INJECTION
  7. NORMAL SALINE [Concomitant]
     Active Substance: SODIUM CHLORIDE
     Indication: PRODUCT USED FOR UNKNOWN INDICATION
     Dosage: 5 ML, PER DAY, ADMINISTERED INTRAVENTRICULARLY, INJECTION
  8. TERBINAFINE. [Suspect]
     Active Substance: TERBINAFINE
     Indication: SCEDOSPORIUM INFECTION
  9. TERBINAFINE. [Suspect]
     Active Substance: TERBINAFINE
     Indication: SCEDOSPORIUM INFECTION
     Dosage: 250 MG, BID
     Route: 048
  10. VORICONAZOLE. [Suspect]
     Active Substance: VORICONAZOLE
     Indication: SCEDOSPORIUM INFECTION
     Dosage: UNK, TABLET
     Route: 065

REACTIONS (3)
  - Disease progression [Unknown]
  - Condition aggravated [Unknown]
  - Treatment failure [Unknown]
